FAERS Safety Report 4519928-7 (Version None)
Quarter: 2004Q4

REPORT INFORMATION
  Report Type: 
  Country: None (occurrence: None)
  Receive Date: 20041207
  Receipt Date: 20041129
  Transmission Date: 20050328
  Serious: Yes (Hospitalization)
  Sender: FDA-Public Use
  Company Number: GB-ROCHE-387448

PATIENT
  Age: 15 Year
  Sex: Female

DRUGS (3)
  1. CLONAZEPAM [Suspect]
     Route: 048
     Dates: start: 20040914, end: 20041030
  2. CLOZARIL [Suspect]
     Route: 048
     Dates: start: 20040722, end: 20040927
  3. LITHIUM [Suspect]
     Indication: LEUKOCYTOSIS
     Route: 048
     Dates: end: 20040927

REACTIONS (11)
  - AGITATION [None]
  - BLOOD POTASSIUM DECREASED [None]
  - BLOOD PRESSURE DECREASED [None]
  - BLOOD UREA DECREASED [None]
  - FATIGUE [None]
  - GRAND MAL CONVULSION [None]
  - MALAISE [None]
  - MYCOPLASMA INFECTION [None]
  - PSYCHOTIC DISORDER [None]
  - THERAPEUTIC AGENT TOXICITY [None]
  - VIRAL INFECTION [None]
